FAERS Safety Report 8297493-9 (Version None)
Quarter: 2012Q2

REPORT INFORMATION
  Report Type: 
  Country: None (occurrence: None)
  Receive Date: 20120419
  Receipt Date: 20120412
  Transmission Date: 20120825
  Serious: Yes (Other)
  Sender: FDA-Public Use
  Company Number: PHHY2012FR031339

PATIENT
  Sex: Male

DRUGS (12)
  1. ASPIRIN [Suspect]
     Indication: CONGESTIVE CARDIOMYOPATHY
     Dosage: 1 DF, QD
     Route: 048
     Dates: start: 20040101, end: 20120307
  2. VALSARTAN [Suspect]
     Indication: HYPERTENSION
     Dosage: 1 DF, QD
     Route: 065
     Dates: start: 20040101
  3. BISOPROLOL FUMARATE [Suspect]
     Indication: CONGESTIVE CARDIOMYOPATHY
     Dosage: 1 DF, QD
     Dates: start: 20040101
  4. EZETIMIBE [Suspect]
     Indication: DYSLIPIDAEMIA
     Dosage: 1 DF, QD
     Route: 048
     Dates: start: 20040101
  5. VASTAREL [Suspect]
     Indication: CONGESTIVE CARDIOMYOPATHY
     Dosage: 2 DF, QD
     Dates: start: 20040101, end: 20120307
  6. IKOREL [Suspect]
     Indication: CONGESTIVE CARDIOMYOPATHY
     Dosage: 1 DF, BID
     Route: 048
     Dates: start: 20040101
  7. PANTOPRAZOLE SODIUM [Suspect]
     Dosage: 1 DF, QD
     Dates: start: 20040101, end: 20120307
  8. MOLSIDOMINE [Suspect]
     Indication: CONGESTIVE CARDIOMYOPATHY
     Dosage: 1 DF, TID
     Dates: start: 20040101
  9. AMLODIPINE BESYLATE [Suspect]
     Indication: HYPERTENSION
     Dosage: 2 DF, QD
     Route: 048
     Dates: start: 20040101
  10. CRESTOR [Suspect]
     Indication: DYSLIPIDAEMIA
     Dosage: 1 DF, QD
     Dates: start: 20040101
  11. PREVISCAN [Suspect]
     Indication: ATRIAL FIBRILLATION
     Dosage: 1 DF, QD
     Route: 048
     Dates: start: 20040101
  12. PLAVIX [Concomitant]
     Dates: start: 20120307

REACTIONS (2)
  - BURNING SENSATION [None]
  - HYPERHIDROSIS [None]
